FAERS Safety Report 10612037 (Version 1)
Quarter: 2014Q4

REPORT INFORMATION
  Report Type: Report from Study
  Country: NL (occurrence: NL)
  Receive Date: 20141126
  Receipt Date: 20141126
  Transmission Date: 20150529
  Serious: Yes (Death)
  Sender: FDA-Public Use
  Company Number: NL-AMGEN-NLDSL2013094556

PATIENT
  Age: 71 Year
  Sex: Male

DRUGS (2)
  1. ZYTIGA [Concomitant]
     Active Substance: ABIRATERONE ACETATE
  2. XGEVA [Suspect]
     Active Substance: DENOSUMAB
     Indication: PRODUCT USED FOR UNKNOWN INDICATION
     Dosage: UNK UNK, Q4WK
     Route: 065

REACTIONS (14)
  - Prostatic specific antigen increased [Unknown]
  - Pallor [Unknown]
  - Weight decreased [Unknown]
  - Paranoia [Unknown]
  - Feeling abnormal [Unknown]
  - Back pain [Unknown]
  - Fatigue [Unknown]
  - Death [Fatal]
  - Depression [Unknown]
  - Musculoskeletal disorder [Unknown]
  - Asthenia [Unknown]
  - Nonspecific reaction [Unknown]
  - Prostatic specific antigen abnormal [Unknown]
  - Cachexia [Unknown]
